FAERS Safety Report 17918900 (Version 10)
Quarter: 2023Q1

REPORT INFORMATION
  Report Type: Spontaneous
  Country: US (occurrence: US)
  Receive Date: 20200619
  Receipt Date: 20230120
  Transmission Date: 20230417
  Serious: Yes (Other)
  Sender: FDA-Public Use
  Company Number: US-PFIZER INC-2020006633

PATIENT
  Age: 81 Year
  Sex: Male

DRUGS (4)
  1. INLYTA [Suspect]
     Active Substance: AXITINIB
     Indication: Renal cancer
     Dosage: 5 MG
  2. INLYTA [Suspect]
     Active Substance: AXITINIB
     Dosage: 1 MG
  3. INLYTA [Suspect]
     Active Substance: AXITINIB
     Dosage: 3 MG, 2X/DAY (TAKE 3 TABLETS BID)
  4. KEYTRUDA [Suspect]
     Active Substance: PEMBROLIZUMAB
     Dosage: UNK

REACTIONS (5)
  - Gait inability [Unknown]
  - Feeling abnormal [Unknown]
  - Fatigue [Unknown]
  - Weight decreased [Unknown]
  - Intentional product use issue [Unknown]
